FAERS Safety Report 4977393-X (Version None)
Quarter: 2006Q2

REPORT INFORMATION
  Report Type: 
  Country: None (occurrence: None)
  Receive Date: 20060413
  Receipt Date: 20060403
  Transmission Date: 20061013
  Serious: Yes (Other)
  Sender: FDA-Public Use
  Company Number: 2006S1000077

PATIENT
  Sex: Male

DRUGS (2)
  1. ACITRETIN [Suspect]
     Indication: PSORIASIS
  2. TEGISON [Concomitant]

REACTIONS (1)
  - BASEDOW'S DISEASE [None]
